FAERS Safety Report 9308688 (Version 5)
Quarter: 2013Q3

REPORT INFORMATION
  Report Type: Report from Study
  Country: US (occurrence: US)
  Receive Date: 20130524
  Receipt Date: 20130708
  Transmission Date: 20140515
  Serious: Yes (Hospitalization)
  Sender: FDA-Public Use
  Company Number: PHHO2013US006665

PATIENT
  Age: 78 Year
  Sex: Male
  Weight: 88.89 kg

DRUGS (12)
  1. LCZ696 [Suspect]
     Indication: CARDIAC FAILURE CHRONIC
     Dosage: 200 MG, BID
     Route: 048
     Dates: start: 20121207, end: 20130516
  2. AMIODARONE HYDROCHLORIDE [Suspect]
     Indication: ATRIAL FIBRILLATION
     Dosage: 200 MG, QD
     Route: 048
     Dates: start: 201206
  3. AMIODARONE HYDROCHLORIDE [Suspect]
     Dosage: 200 MG, QD
     Route: 048
     Dates: start: 201209
  4. XARELTO [Concomitant]
     Indication: ATRIAL FIBRILLATION
     Dosage: 15 MG, QD
     Route: 048
     Dates: start: 201209
  5. XARELTO [Concomitant]
     Dosage: 15 MG, QD
     Route: 048
  6. COREG [Concomitant]
     Indication: CARDIAC FAILURE CHRONIC
     Dosage: 6.25 MG, BID
     Route: 048
     Dates: start: 201303, end: 20130516
  7. METOLAZONE [Concomitant]
     Indication: CARDIAC FAILURE CHRONIC
     Dosage: 2.5 MG, QD
     Route: 048
     Dates: start: 200806, end: 20130516
  8. DIGOXIN [Concomitant]
     Indication: CARDIAC FAILURE CHRONIC
     Dosage: 125 UG, QD
     Route: 048
     Dates: start: 200511, end: 20130516
  9. DIGOXIN [Concomitant]
     Indication: CARDIOMYOPATHY
  10. DIGOXIN [Concomitant]
     Indication: CARDIAC FAILURE
  11. CARVEDILOL [Concomitant]
     Indication: CARDIAC FAILURE CONGESTIVE
     Dosage: 6.25 MG, BID
     Route: 048
     Dates: start: 201303
  12. LASIX [Concomitant]
     Indication: CARDIAC FAILURE CONGESTIVE
     Dosage: 40 MG, QD
     Route: 048
     Dates: start: 200510, end: 20130516

REACTIONS (2)
  - Coagulopathy [Recovering/Resolving]
  - Cardiac failure congestive [Recovering/Resolving]
